FAERS Safety Report 17190574 (Version 1)
Quarter: 2019Q4

REPORT INFORMATION
  Report Type: Spontaneous
  Country: US (occurrence: US)
  Receive Date: 20191220
  Receipt Date: 20191220
  Transmission Date: 20200122
  Serious: Yes (Hospitalization)
  Sender: FDA-Public Use
  Company Number: None

PATIENT
  Age: 60 Year
  Sex: Female

DRUGS (3)
  1. GLATOPA [Suspect]
     Active Substance: GLATIRAMER ACETATE
     Indication: MULTIPLE SCLEROSIS
  2. LITHIUM CARB TAB 450 MG ER [Concomitant]
  3. METHYLPHENID TAB 18 MG ER [Concomitant]

REACTIONS (2)
  - Adverse reaction [None]
  - Therapy cessation [None]
